FAERS Safety Report 9441767 (Version 3)
Quarter: 2013Q4

REPORT INFORMATION
  Report Type: Spontaneous
  Country: DE (occurrence: DE)
  Receive Date: 20130806
  Receipt Date: 20131203
  Transmission Date: 20140711
  Serious: Yes (Other)
  Sender: FDA-Public Use
  Company Number: DE-ROCHE-1257507

PATIENT
  Sex: Female

DRUGS (3)
  1. LUCENTIS [Suspect]
     Indication: PRODUCT USED FOR UNKNOWN INDICATION
     Dosage: REGIMEN 1
     Route: 050
  2. LUCENTIS [Suspect]
     Dosage: REGIMEN 1
     Route: 050
     Dates: start: 20130624
  3. LUCENTIS [Suspect]
     Dosage: REGIMEN 1
     Route: 050
     Dates: start: 20130722

REACTIONS (1)
  - Peripheral arterial occlusive disease [Recovering/Resolving]
